FAERS Safety Report 5356300-4 (Version None)
Quarter: 2007Q2

REPORT INFORMATION
  Report Type: 
  Country: None (occurrence: None)
  Receive Date: 20070613
  Receipt Date: 20070604
  Transmission Date: 20071010
  Serious: Yes (Other)
  Sender: FDA-Public Use
  Company Number: GB-PFIZER INC-2007045423

PATIENT
  Sex: Female

DRUGS (2)
  1. ISTIN [Suspect]
     Route: 048
  2. GRAPEFRUIT JUICE [Suspect]

REACTIONS (2)
  - BLOOD PRESSURE INCREASED [None]
  - FOOD INTERACTION [None]
